FAERS Safety Report 7600155-1 (Version None)
Quarter: 2011Q3

REPORT INFORMATION
  Report Type: 
  Country: None (occurrence: None)
  Receive Date: 20110711
  Receipt Date: 20110629
  Transmission Date: 20111222
  Serious: No
  Sender: FDA-Public Use
  Company Number: PHHY2011US58822

PATIENT
  Sex: Male

DRUGS (6)
  1. OMEPRAZOLE [Concomitant]
  2. GABAPENTIN [Concomitant]
  3. LASIX [Concomitant]
  4. TASIGNA [Suspect]
     Indication: LEUKAEMIA
     Dosage: 400 MG, BID
     Route: 048
     Dates: start: 20110621, end: 20110625
  5. EPIPEN [Concomitant]
  6. CIALIS [Concomitant]

REACTIONS (4)
  - COUGH [None]
  - ARTHRALGIA [None]
  - ABDOMINAL PAIN UPPER [None]
  - HEADACHE [None]
